FAERS Safety Report 5851847-6 (Version None)
Quarter: 2008Q3

REPORT INFORMATION
  Report Type: 
  Country: None (occurrence: None)
  Receive Date: 20080819
  Receipt Date: 20080805
  Transmission Date: 20090109
  Serious: Yes (Hospitalization, Other)
  Sender: FDA-Public Use
  Company Number: 2008AL009516

PATIENT
  Age: 20 Year
  Sex: Female

DRUGS (8)
  1. DIAZEPAM TAB [Suspect]
     Indication: ANXIETY
     Dosage: 5 MG; BID; PO
     Route: 048
  2. DIAZEPAM TAB [Suspect]
     Indication: POST-TRAUMATIC STRESS DISORDER
     Dosage: 5 MG; BID; PO
     Route: 048
  3. ZIPRASIDONE HCL [Concomitant]
  4. QUETIAPINE [Concomitant]
  5. VENLAFAXINE HCL [Concomitant]
  6. CANNABIS [Concomitant]
  7. ALCOHOL [Concomitant]
  8. VALPROIC ACID [Concomitant]

REACTIONS (7)
  - ALCOHOL ABUSE [None]
  - COMA [None]
  - DRUG ABUSE [None]
  - OVERDOSE [None]
  - SOMNOLENCE [None]
  - TACHYCARDIA [None]
  - TREMOR [None]
